FAERS Safety Report 10101594 (Version 1)
Quarter: 2014Q2

REPORT INFORMATION
  Report Type: Spontaneous
  Country: FR (occurrence: FR)
  Receive Date: 20140424
  Receipt Date: 20140424
  Transmission Date: 20141212
  Serious: Yes (Hospitalization)
  Sender: FDA-Public Use
  Company Number: FR-JNJFOC-20140410118

PATIENT
  Age: 51 Year
  Sex: Female

DRUGS (9)
  1. STELARA [Suspect]
     Indication: PSORIASIS
     Route: 058
     Dates: start: 201310, end: 201402
  2. NOVORAPID [Concomitant]
     Route: 065
  3. KARDEGIC [Concomitant]
     Route: 048
  4. DIFFU-K [Concomitant]
  5. DURAGESIC [Concomitant]
     Route: 062
  6. SERETIDE [Concomitant]
     Route: 065
  7. FLUVASTATIN [Concomitant]
     Route: 065
  8. LANTUS [Concomitant]
     Route: 065
  9. PRETERAX [Concomitant]
     Route: 065

REACTIONS (1)
  - Myocardial infarction [Recovered/Resolved]
